FAERS Safety Report 10997234 (Version 1)
Quarter: 2015Q2

REPORT INFORMATION
  Report Type: Spontaneous
  Country: US (occurrence: None)
  Receive Date: 20150407
  Receipt Date: 20150407
  Transmission Date: 20150821
  Serious: Yes (Hospitalization)
  Sender: FDA-Public Use
  Company Number: None

PATIENT
  Age: 56 Year
  Sex: Female
  Weight: 86.36 kg

DRUGS (1)
  1. CASODEX [Suspect]
     Active Substance: BICALUTAMIDE
     Dates: end: 20150310

REACTIONS (11)
  - Aspartate aminotransferase increased [None]
  - Platelet count decreased [None]
  - Alanine aminotransferase increased [None]
  - Gastroenteritis [None]
  - Haemoglobin decreased [None]
  - Gastrointestinal inflammation [None]
  - Diarrhoea [None]
  - Incontinence [None]
  - Acute kidney injury [None]
  - Dehydration [None]
  - Diverticulitis [None]

NARRATIVE: CASE EVENT DATE: 20150317
